FAERS Safety Report 4497945-3 (Version None)
Quarter: 2004Q4

REPORT INFORMATION
  Report Type: 
  Country: None (occurrence: None)
  Receive Date: 20041105
  Receipt Date: 20041027
  Transmission Date: 20050328
  Serious: Yes (Hospitalization)
  Sender: FDA-Public Use
  Company Number: 200415208BCC

PATIENT
  Sex: Female
  Weight: 50.3493 kg

DRUGS (4)
  1. ASPIRIN [Suspect]
     Indication: MYOCARDIAL INFARCTION
     Dosage: 81 MG, QD, ORAL
     Route: 048
  2. ASPIRIN [Suspect]
     Indication: PROPHYLAXIS
     Dosage: 81 MG, QD, ORAL
     Route: 048
  3. VIOXX [Concomitant]
  4. NEXIUM [Concomitant]

REACTIONS (2)
  - GASTRITIS [None]
  - WEIGHT DECREASED [None]
